FAERS Safety Report 4842315-9 (Version None)
Quarter: 2005Q4

REPORT INFORMATION
  Report Type: 
  Country: None (occurrence: None)
  Receive Date: 20051201
  Receipt Date: 20051122
  Transmission Date: 20060501
  Serious: Yes (Hospitalization)
  Sender: FDA-Public Use
  Company Number: 2005CG01946

PATIENT
  Age: 21 Year
  Sex: Male

DRUGS (8)
  1. NEXIUM [Suspect]
     Route: 048
     Dates: start: 20050929, end: 20051110
  2. TAZOCILLINE [Suspect]
     Indication: SUPERINFECTION
     Dosage: 4 G + 500 MG TID
     Route: 042
     Dates: start: 20051013, end: 20051110
  3. TARDYFERON [Concomitant]
  4. DAFALGAN [Concomitant]
  5. SKENAN [Concomitant]
  6. INNOHEP [Concomitant]
  7. ASPEGIC 325 [Concomitant]
  8. FOLDINE [Concomitant]

REACTIONS (3)
  - HAEMOGLOBIN DECREASED [None]
  - NEUTROPENIA [None]
  - SUPERINFECTION [None]
